FAERS Safety Report 9664395 (Version 1)
Quarter: 2013Q4

REPORT INFORMATION
  Report Type: Spontaneous
  Country: US (occurrence: None)
  Receive Date: 20131030
  Receipt Date: 20131030
  Transmission Date: 20140711
  Serious: Yes (Hospitalization)
  Sender: FDA-Public Use
  Company Number: None

PATIENT
  Age: 33 Year
  Sex: Female

DRUGS (1)
  1. REBIF [Suspect]
     Route: 058
     Dates: start: 20130913, end: 20131011

REACTIONS (3)
  - Hypersensitivity [None]
  - Urticaria [None]
  - Pruritus [None]
